FAERS Safety Report 11244460 (Version 1)
Quarter: 2015Q3

REPORT INFORMATION
  Report Type: Spontaneous
  Country: US (occurrence: US)
  Receive Date: 20150707
  Receipt Date: 20150707
  Transmission Date: 20151125
  Serious: Yes (Other)
  Sender: FDA-Public Use
  Company Number: US-BAYER-2015-367672

PATIENT
  Sex: Female

DRUGS (20)
  1. COLECALCIFEROL [Concomitant]
     Active Substance: CHOLECALCIFEROL
     Dosage: 1 DF, QD
     Route: 048
  2. AMITRIPTYLINE [Concomitant]
     Active Substance: AMITRIPTYLINE
     Dosage: 2 DF, QPM
     Route: 048
  3. CETIRIZINE [Concomitant]
     Active Substance: CETIRIZINE HYDROCHLORIDE
     Dosage: 1 DF, PRN
     Route: 048
  4. HYDROXYZINE HCL [Concomitant]
     Active Substance: HYDROXYZINE HYDROCHLORIDE
     Indication: HEADACHE
     Dosage: 1 DF, Q6HRS PRN
     Route: 048
  5. ALEVE [Suspect]
     Active Substance: NAPROXEN SODIUM
  6. GLIPIZIDE. [Concomitant]
     Active Substance: GLIPIZIDE
     Dosage: 1 DF, UNK
     Route: 048
  7. BAYER GENUINE ASPIRIN [Suspect]
     Active Substance: ASPIRIN
  8. EPINEPHRINE. [Concomitant]
     Active Substance: EPINEPHRINE
  9. FLUTICASONE [Concomitant]
     Active Substance: FLUTICASONE\FLUTICASONE PROPIONATE
     Dosage: 1 PUFF(S), BID
     Route: 055
  10. DULOXETINE. [Concomitant]
     Active Substance: DULOXETINE
     Dosage: 1 DF, BID
     Route: 048
  11. POLYETHYLENE GLYCOL [Concomitant]
     Active Substance: POLYETHYLENE GLYCOLS
  12. PREGABALIN. [Concomitant]
     Active Substance: PREGABALIN
     Dosage: 1 DF, BID
     Route: 048
  13. ATORVASTATIN [Concomitant]
     Active Substance: ATORVASTATIN
     Dosage: 1 DF, QD
     Route: 048
  14. ALBUTEROL SULFATE. [Concomitant]
     Active Substance: ALBUTEROL SULFATE
     Dosage: 2 PUFF(S), QID
     Route: 055
  15. ALPRAZOLAM. [Concomitant]
     Active Substance: ALPRAZOLAM
     Dosage: 1 DF, TID
     Route: 048
  16. DULOXETINE. [Concomitant]
     Active Substance: DULOXETINE
     Dosage: 1 DF, BID
     Route: 048
  17. LEVOTHYROXINE. [Concomitant]
     Active Substance: LEVOTHYROXINE
     Dosage: 1 DF, QD
     Route: 048
  18. CREON [AMYLASE,LIPASE,PROTEASE] [Concomitant]
     Dosage: 1 DF, TID
     Route: 048
  19. ONDANSETRON [Concomitant]
     Active Substance: ONDANSETRON
     Dosage: 1 DF, TID BEFORE MEALS
     Route: 048
  20. TRAMADOL. [Concomitant]
     Active Substance: TRAMADOL
     Dosage: 1-2 TABLETS BY MOUTH, Q6H PRN
     Route: 048

REACTIONS (1)
  - Drug hypersensitivity [Unknown]
